FAERS Safety Report 8356414-0 (Version None)
Quarter: 2012Q2

REPORT INFORMATION
  Report Type: 
  Country: None (occurrence: None)
  Receive Date: 20120511
  Receipt Date: 20120511
  Transmission Date: 20120825
  Serious: Yes (Other)
  Sender: FDA-Public Use
  Company Number: None

PATIENT
  Sex: Female

DRUGS (1)
  1. NEULASTA [Suspect]
     Indication: NEUTROPENIA
     Dosage: 6 MG EVERY 3 WKS SUB-Q
     Route: 058
     Dates: start: 20120508

REACTIONS (2)
  - MALAISE [None]
  - ERYTHEMA [None]
